FAERS Safety Report 24393539 (Version 1)
Quarter: 2024Q4

REPORT INFORMATION
  Report Type: Spontaneous
  Country: US (occurrence: None)
  Receive Date: 20241003
  Receipt Date: 20241003
  Transmission Date: 20250115
  Serious: Yes (Hospitalization)
  Sender: Public
  Company Number: None

PATIENT
  Sex: Female

DRUGS (2)
  1. RESTASIS [Suspect]
     Active Substance: CYCLOSPORINE
     Indication: Dry eye
     Dosage: FREQUENCY : TWICE A DAY;  BOTH EYES?
     Route: 047
     Dates: start: 202409
  2. MAYZENT [Concomitant]
     Active Substance: SIPONIMOD

REACTIONS (1)
  - Seizure [None]
